FAERS Safety Report 5719073-9 (Version None)
Quarter: 2008Q2

REPORT INFORMATION
  Report Type: 
  Country: None (occurrence: None)
  Receive Date: 20080423
  Receipt Date: 20080409
  Transmission Date: 20081010
  Serious: Yes (Other)
  Sender: FDA-Public Use
  Company Number: 2008-01177

PATIENT
  Age: 61 Year
  Sex: Male
  Weight: 79.5 kg

DRUGS (4)
  1. VELCADE [Suspect]
     Indication: MULTIPLE MYELOMA
     Dosage: 1.3 MG/M2, INTRAVENOUS
     Route: 042
     Dates: start: 20061002, end: 20061102
  2. DEXAMETHASONE [Concomitant]
  3. PANTOPRAZOLE SODIUM [Concomitant]
  4. BACTRIM DS [Concomitant]

REACTIONS (1)
  - SKIN NECROSIS [None]
